FAERS Safety Report 6707775-7 (Version None)
Quarter: 2010Q2

REPORT INFORMATION
  Report Type: 
  Country: None (occurrence: None)
  Receive Date: 20100503
  Receipt Date: 20090302
  Transmission Date: 20101027
  Serious: No
  Sender: FDA-Public Use
  Company Number: US-ASTRAZENECA-2009UW05531

PATIENT
  Age: 19 Year
  Sex: Male

DRUGS (1)
  1. NEXIUM [Suspect]
     Indication: DYSPEPSIA
     Route: 048
     Dates: start: 20080301

REACTIONS (3)
  - EATING DISORDER [None]
  - INSOMNIA [None]
  - VOMITING [None]
